FAERS Safety Report 9175484 (Version 1)
Quarter: 2013Q1

REPORT INFORMATION
  Report Type: Spontaneous
  Country: DE (occurrence: DE)
  Receive Date: 20130320
  Receipt Date: 20130320
  Transmission Date: 20140127
  Serious: Yes (Other)
  Sender: FDA-Public Use
  Company Number: DE-TEVA-391664GER

PATIENT
  Sex: 0

DRUGS (2)
  1. VALPROIC ACID [Suspect]
     Indication: SCHIZOPHRENIA
     Dosage: 1200 MILLIGRAM DAILY;
     Route: 048
  2. VALPROIC ACID [Suspect]
     Dosage: 1800 MILLIGRAM DAILY;
     Route: 048

REACTIONS (2)
  - Withdrawal syndrome [Unknown]
  - Convulsion [Unknown]
